FAERS Safety Report 9511864 (Version 1)
Quarter: 2013Q1

REPORT INFORMATION
  Report Type: Spontaneous
  Country: US (occurrence: None)
  Receive Date: 20130305
  Receipt Date: 20130305
  Transmission Date: 20140127
  Serious: Yes (Other)
  Sender: FDA-Public Use
  Company Number: 163-21880-11102201

PATIENT
  Age: 62 Year
  Sex: Male

DRUGS (7)
  1. REVLIMID [Suspect]
     Indication: PLASMA CELL MYELOMA
     Route: 048
     Dates: start: 20110315
  2. ASPIRIN (ACETYLSALICYLIC ACID) [Concomitant]
  3. METOPROLOL (METOPROLOL) [Concomitant]
  4. ZOMETA (ZOLEDRONIC ACID) [Concomitant]
  5. CALCIUM (CALCIUM) [Concomitant]
  6. VITAMIN D (ERGOCALCIFEROL) [Concomitant]
  7. IRON (IRON) [Concomitant]

REACTIONS (2)
  - Platelet count decreased [None]
  - Red blood cell count decreased [None]
